FAERS Safety Report 18632639 (Version 1)
Quarter: 2020Q4

REPORT INFORMATION
  Report Type: Spontaneous
  Country: US (occurrence: US)
  Receive Date: 20201217
  Receipt Date: 20201217
  Transmission Date: 20210114
  Serious: Yes (Hospitalization)
  Sender: FDA-Public Use
  Company Number: None

PATIENT
  Age: 47 Year
  Sex: Female

DRUGS (14)
  1. DEXILANT [Concomitant]
     Active Substance: DEXLANSOPRAZOLE
  2. DULOXETINE. [Concomitant]
     Active Substance: DULOXETINE
  3. DIMETHYL FUM 120MG CAP [Suspect]
     Active Substance: DIMETHYL FUMARATE
     Indication: MULTIPLE SCLEROSIS
     Route: 048
     Dates: start: 20200917
  4. OXYBUTYNIN. [Concomitant]
     Active Substance: OXYBUTYNIN CHLORIDE
  5. DICYCLOMINE [Concomitant]
     Active Substance: DICYCLOMINE HYDROCHLORIDE
  6. ROPINIROLE. [Concomitant]
     Active Substance: ROPINIROLE
  7. LYRICA [Concomitant]
     Active Substance: PREGABALIN
  8. NITROFURANTIN [Concomitant]
     Active Substance: NITROFURANTOIN
  9. TOPIRAMATE. [Concomitant]
     Active Substance: TOPIRAMATE
  10. HYDROXYZ HCL [Concomitant]
     Active Substance: HYDROXYZINE HYDROCHLORIDE
  11. KETOROLAC [Concomitant]
     Active Substance: KETOROLAC TROMETHAMINE
  12. METHOCARBAM [Concomitant]
     Active Substance: METHOCARBAMOL
  13. VITAMIN D3 [Concomitant]
     Active Substance: CHOLECALCIFEROL
  14. CRANBERRY. [Concomitant]
     Active Substance: CRANBERRY

REACTIONS (1)
  - Cardiac operation [None]

NARRATIVE: CASE EVENT DATE: 20201209
